FAERS Safety Report 6477194-X (Version None)
Quarter: 2009Q4

REPORT INFORMATION
  Report Type: 
  Country: None (occurrence: None)
  Receive Date: 20091204
  Receipt Date: 20091204
  Transmission Date: 20100525
  Serious: Yes (Other)
  Sender: FDA-Public Use
  Company Number: None

PATIENT
  Age: 57 Year
  Sex: Male
  Weight: 99.7913 kg

DRUGS (1)
  1. CRESTOR [Suspect]
     Indication: BLOOD CHOLESTEROL INCREASED
     Dosage: 10 MG ONCE DAILY
     Dates: start: 20090315, end: 20091115

REACTIONS (6)
  - DYSSTASIA [None]
  - GAIT DISTURBANCE [None]
  - INSOMNIA [None]
  - MUSCLE SPASMS [None]
  - MYALGIA [None]
  - PAIN [None]
